FAERS Safety Report 5284445-6 (Version None)
Quarter: 2007Q2

REPORT INFORMATION
  Report Type: 
  Country: None (occurrence: None)
  Receive Date: 20070403
  Receipt Date: 20070330
  Transmission Date: 20071010
  Serious: Yes (Disabling)
  Sender: FDA-Public Use
  Company Number: 2006UW27563

PATIENT
  Age: 38 Year
  Sex: Female

DRUGS (6)
  1. SEROQUEL [Suspect]
     Indication: BIPOLAR DISORDER
     Dosage: 300 TO 400 MG
     Route: 048
     Dates: start: 20030101, end: 20050101
  2. SEROQUEL [Suspect]
     Indication: BIPOLAR I DISORDER
     Dosage: 300 TO 400 MG
     Route: 048
     Dates: start: 20030101, end: 20050101
  3. ABILIFY [Concomitant]
  4. OLANZAPINE [Concomitant]
  5. LEXAPRO [Concomitant]
  6. TRAZODONE HCL [Concomitant]

REACTIONS (6)
  - BRAIN NEOPLASM [None]
  - DIABETES MELLITUS [None]
  - INCONTINENCE [None]
  - INSOMNIA [None]
  - PANIC ATTACK [None]
  - THYROID DISORDER [None]
